FAERS Safety Report 7519505-X (Version None)
Quarter: 2011Q2

REPORT INFORMATION
  Report Type: 
  Country: None (occurrence: None)
  Receive Date: 20110602
  Receipt Date: 20110524
  Transmission Date: 20111010
  Serious: Yes (Other)
  Sender: FDA-Public Use
  Company Number: US-ASTRAZENECA-2011SE32129

PATIENT
  Age: 54 Year
  Sex: Male

DRUGS (1)
  1. TOPROL-XL [Suspect]
     Route: 048

REACTIONS (4)
  - TOE AMPUTATION [None]
  - SEPSIS [None]
  - STAPHYLOCOCCAL SEPSIS [None]
  - GANGRENE [None]
